FAERS Safety Report 10497173 (Version 1)
Quarter: 2014Q4

REPORT INFORMATION
  Report Type: Spontaneous
  Country: US (occurrence: US)
  Receive Date: 20141006
  Receipt Date: 20141006
  Transmission Date: 20150528
  Serious: Yes (Death)
  Sender: FDA-Public Use
  Company Number: US-CELGENE-USA-2014094507

PATIENT
  Age: 71 Year
  Sex: Male

DRUGS (1)
  1. REVLIMID [Suspect]
     Active Substance: LENALIDOMIDE
     Indication: MALIGNANT MEDIASTINAL NEOPLASM
     Dosage: 10 MILLIGRAM
     Route: 048
     Dates: start: 201407, end: 2014

REACTIONS (1)
  - Malignant mediastinal neoplasm [Fatal]

NARRATIVE: CASE EVENT DATE: 20140801
